FAERS Safety Report 6557361-7 (Version None)
Quarter: 2010Q1

REPORT INFORMATION
  Report Type: 
  Country: None (occurrence: None)
  Receive Date: 20100129
  Receipt Date: 20100115
  Transmission Date: 20100710
  Serious: Yes (Other)
  Sender: FDA-Public Use
  Company Number: PHHY2010ES02160

PATIENT
  Age: 69 Year
  Sex: Female

DRUGS (6)
  1. AREDIA [Suspect]
     Dosage: 90 MG,  1 DOSE PER CICLE
     Route: 030
     Dates: start: 20081202, end: 20091112
  2. ARASNEP [Concomitant]
     Dosage: 150 UG, UNK
     Route: 058
  3. CAOSINA [Concomitant]
  4. INNOHEP [Concomitant]
  5. REVLIMID [Concomitant]
     Indication: MULTIPLE MYELOMA
     Dosage: 60 MG, UNK
     Route: 050
     Dates: start: 20071004
  6. ROCALTROL [Concomitant]

REACTIONS (1)
  - OSTEONECROSIS [None]
